FAERS Safety Report 6435752-2 (Version None)
Quarter: 2009Q4

REPORT INFORMATION
  Report Type: 
  Country: None (occurrence: None)
  Receive Date: 20091111
  Receipt Date: 20091030
  Transmission Date: 20100525
  Serious: Yes (Other)
  Sender: FDA-Public Use
  Company Number: US-JNJFOC-20091004122

PATIENT
  Sex: Female
  Weight: 81.19 kg

DRUGS (6)
  1. DURAGESIC-100 [Suspect]
     Route: 062
  2. DURAGESIC-100 [Suspect]
     Indication: BACK PAIN
     Route: 062
  3. DURAGESIC-100 [Suspect]
     Route: 062
     Dates: start: 20091001
  4. SYNTHROID [Concomitant]
     Indication: THYROID DISORDER
     Route: 048
  5. AMRIX [Concomitant]
     Indication: BACK DISORDER
     Dosage: AS NEEDED
     Route: 048
  6. HYDROCODONE [Concomitant]
     Indication: BREAKTHROUGH PAIN
     Dosage: 10/325 AS NEEDED
     Route: 048

REACTIONS (9)
  - ADVERSE EVENT [None]
  - BACK DISORDER [None]
  - DRUG EFFECT DECREASED [None]
  - DRUG INEFFECTIVE [None]
  - FLUID RETENTION [None]
  - HYPERHIDROSIS [None]
  - INAPPROPRIATE SCHEDULE OF DRUG ADMINISTRATION [None]
  - MEMORY IMPAIRMENT [None]
  - WEIGHT DECREASED [None]
